FAERS Safety Report 9439281 (Version 2)
Quarter: 2013Q4

REPORT INFORMATION
  Report Type: Spontaneous
  Country: ES (occurrence: ES)
  Receive Date: 20130804
  Receipt Date: 20131121
  Transmission Date: 20140711
  Serious: Yes (Hospitalization)
  Sender: FDA-Public Use
  Company Number: ES-ROCHE-1255502

PATIENT
  Age: 48 Year
  Sex: Male

DRUGS (6)
  1. PEGASYS [Suspect]
     Indication: HEPATITIS C
     Route: 058
     Dates: start: 201209, end: 20121114
  2. RIBAVIRIN [Interacting]
     Indication: HEPATITIS C
     Route: 048
     Dates: start: 201209, end: 20121114
  3. INCIVO [Interacting]
     Indication: HEPATITIS C
     Route: 048
     Dates: start: 201209, end: 20121114
  4. NORVIR [Interacting]
     Indication: HIV INFECTION
     Dosage: SOFT CAPSULES
     Route: 048
     Dates: start: 2000
  5. PREZISTA [Interacting]
     Indication: HIV INFECTION
     Route: 048
     Dates: start: 2000
  6. TRUVADA [Interacting]
     Indication: HIV INFECTION
     Route: 048
     Dates: start: 1995

REACTIONS (2)
  - Pancreatitis acute [Recovered/Resolved]
  - Drug interaction [Unknown]
